FAERS Safety Report 7630632-9 (Version None)
Quarter: 2011Q3

REPORT INFORMATION
  Report Type: 
  Country: None (occurrence: None)
  Receive Date: 20110722
  Receipt Date: 20110711
  Transmission Date: 20111222
  Serious: Yes (Other)
  Sender: FDA-Public Use
  Company Number: PHHY2011FR62691

PATIENT
  Age: 51 Year
  Sex: Female

DRUGS (3)
  1. ZOLEDRONOC ACID [Suspect]
     Indication: OSTEOPOROSIS POSTMENOPAUSAL
     Dosage: UNK UKN, UNK
     Route: 042
     Dates: start: 20100201
  2. ZOLEDRONOC ACID [Suspect]
     Dosage: UNK UKN, UNK
     Route: 042
     Dates: start: 20110101
  3. ANALGESICS [Concomitant]
     Indication: OSTEOARTHRITIS
     Dosage: UNK UKN, UNK

REACTIONS (7)
  - GINGIVAL SWELLING [None]
  - PRESBYOPIA [None]
  - LACRIMATION INCREASED [None]
  - BONE PAIN [None]
  - DIZZINESS [None]
  - EXOSTOSIS [None]
  - PERIODONTITIS [None]
